FAERS Safety Report 17211650 (Version 1)
Quarter: 2019Q4

REPORT INFORMATION
  Report Type: Spontaneous
  Country: CN (occurrence: CN)
  Receive Date: 20191229
  Receipt Date: 20191229
  Transmission Date: 20200122
  Serious: Yes (Other)
  Sender: FDA-Public Use
  Company Number: CN-ROCHE-2507421

PATIENT
  Sex: Male
  Weight: 77 kg

DRUGS (6)
  1. ZELBORAF [Suspect]
     Active Substance: VEMURAFENIB
     Route: 048
     Dates: start: 20191117, end: 20191202
  2. APATINIB MESYLATE [Suspect]
     Active Substance: APATINIB
     Indication: MALIGNANT MELANOMA
     Route: 048
     Dates: start: 20191121, end: 20191218
  3. ZELBORAF [Suspect]
     Active Substance: VEMURAFENIB
     Indication: MALIGNANT MELANOMA
     Route: 048
     Dates: start: 20170704
  4. APATINIB MESYLATE [Suspect]
     Active Substance: APATINIB
     Indication: METASTASIS
  5. ZELBORAF [Suspect]
     Active Substance: VEMURAFENIB
     Indication: METASTASIS
     Route: 048
  6. ZELBORAF [Suspect]
     Active Substance: VEMURAFENIB
     Dosage: 0.48 G IN MORNING, 0.72 G IN THE EVENING
     Route: 048
     Dates: start: 20190829

REACTIONS (1)
  - Cardiotoxicity [Recovering/Resolving]
